FAERS Safety Report 9290033 (Version 2)
Quarter: 2013Q2

REPORT INFORMATION
  Report Type: Spontaneous
  Country: DE (occurrence: None)
  Receive Date: 20130510
  Receipt Date: 20130528
  Transmission Date: 20140414
  Serious: Yes (Hospitalization)
  Sender: FDA-Public Use
  Company Number: 2013MPI00247

PATIENT
  Age: 60 Year
  Sex: Male

DRUGS (3)
  1. ADCETRIS [Suspect]
     Indication: T-CELL LYMPHOMA
     Dosage: 150 MG, QCYCLE, INTRAVENOUS
     Route: 042
     Dates: start: 20130405, end: 20130405
  2. PLAVIX (CLOPIDOGREL SULFATE) [Concomitant]
  3. XARELTO (RIVAROXABAN) [Concomitant]

REACTIONS (1)
  - Febrile neutropenia [None]
